FAERS Safety Report 24872577 (Version 1)
Quarter: 2025Q1

REPORT INFORMATION
  Report Type: Spontaneous
  Country: US (occurrence: US)
  Receive Date: 20250122
  Receipt Date: 20250122
  Transmission Date: 20250409
  Serious: Yes (Other)
  Sender: COOPERSURGICAL
  Company Number: US-COOPERSURGICAL, INC.-2025CPS000206

PATIENT
  Age: 42 Year
  Sex: Female
  Weight: 65.76 kg

DRUGS (2)
  1. PARAGARD T 380A [Suspect]
     Active Substance: COPPER
     Indication: Contraception
     Route: 015
     Dates: start: 20190101, end: 20201201
  2. NEXPLANON [Concomitant]
     Active Substance: ETONOGESTREL
     Dates: start: 201608, end: 201908

REACTIONS (10)
  - Reproductive complication associated with device [Not Recovered/Not Resolved]
  - Female sterilisation [Not Recovered/Not Resolved]
  - Cervical dysplasia [Unknown]
  - Emotional distress [Not Recovered/Not Resolved]
  - Depression [Not Recovered/Not Resolved]
  - Menstrual discomfort [Recovered/Resolved]
  - Pain [Recovered/Resolved]
  - Abnormal uterine bleeding [Recovered/Resolved]
  - Muscle spasms [Recovered/Resolved]
  - Device dislocation [Recovered/Resolved]

NARRATIVE: CASE EVENT DATE: 20201201
